FAERS Safety Report 20835950 (Version 1)
Quarter: 2022Q2

REPORT INFORMATION
  Report Type: Spontaneous
  Country: US (occurrence: US)
  Receive Date: 20220516
  Receipt Date: 20220516
  Transmission Date: 20220720
  Serious: No
  Sender: FDA-Public Use
  Company Number: US-SANOFI-01100467

PATIENT
  Sex: Female

DRUGS (2)
  1. ELITEK [Suspect]
     Active Substance: RASBURICASE
  2. SOLIQUA 100/33 [Suspect]
     Active Substance: INSULIN GLARGINE\LIXISENATIDE

REACTIONS (1)
  - Hyperglycaemia [Unknown]
